FAERS Safety Report 9261258 (Version 1)
Quarter: 2013Q2

REPORT INFORMATION
  Report Type: Report from Study
  Country: BR (occurrence: BR)
  Receive Date: 20130429
  Receipt Date: 20130429
  Transmission Date: 20140414
  Serious: Yes (Hospitalization, Other)
  Sender: FDA-Public Use
  Company Number: PHHY2013BR028562

PATIENT
  Age: 75 Year
  Sex: Female
  Weight: 52 kg

DRUGS (2)
  1. DIOVAN AMLO FIX [Suspect]
     Indication: HYPERTENSION
     Dosage: 1 DF (160 MG VALS, 5 MG AMLO), QD  (IN THE MORNING)
     Route: 048
     Dates: start: 201210
  2. ASPIRINA PREVENT [Concomitant]
     Indication: CARDIAC DISORDER
     Dosage: 1 DF (100MG), DAY
     Route: 048
     Dates: start: 201209

REACTIONS (7)
  - Nephrolithiasis [Recovering/Resolving]
  - Abdominal pain [Recovering/Resolving]
  - Osteopenia [Recovering/Resolving]
  - Arthralgia [Recovering/Resolving]
  - Hypoaesthesia [Recovering/Resolving]
  - Oesophagitis [Recovering/Resolving]
  - Dry mouth [Recovering/Resolving]
